FAERS Safety Report 7212715-0 (Version None)
Quarter: 2011Q1

REPORT INFORMATION
  Report Type: 
  Country: None (occurrence: None)
  Receive Date: 20110106
  Receipt Date: 20110104
  Transmission Date: 20110831
  Serious: Yes (Other)
  Sender: FDA-Public Use
  Company Number: US-JNJFOC-20110100765

PATIENT
  Sex: Female
  Weight: 68.04 kg

DRUGS (3)
  1. PROGESTERONE [Concomitant]
     Indication: ILL-DEFINED DISORDER
     Route: 065
  2. PROGESTERONE [Concomitant]
     Route: 065
  3. CONCERTA [Suspect]
     Indication: ATTENTION DEFICIT/HYPERACTIVITY DISORDER
     Route: 048

REACTIONS (4)
  - DRUG EXPOSURE DURING PREGNANCY [None]
  - INFERTILITY FEMALE [None]
  - PROGESTERONE DECREASED [None]
  - ABORTION SPONTANEOUS [None]
